FAERS Safety Report 16642432 (Version 1)
Quarter: 2019Q3

REPORT INFORMATION
  Report Type: Spontaneous
  Country: US (occurrence: US)
  Receive Date: 20190729
  Receipt Date: 20190729
  Transmission Date: 20191004
  Serious: No
  Sender: FDA-Public Use
  Company Number: US-MYLANLABS-2019M1065436

PATIENT
  Sex: Male
  Weight: 107 kg

DRUGS (2)
  1. MUSE [Suspect]
     Active Substance: ALPROSTADIL
     Indication: DIABETES MELLITUS
     Dosage: UNK
     Route: 066
  2. MUSE [Suspect]
     Active Substance: ALPROSTADIL
     Indication: REPRODUCTIVE TRACT DISORDER

REACTIONS (1)
  - Drug ineffective [Unknown]
